FAERS Safety Report 9235537 (Version 1)
Quarter: 2013Q2

REPORT INFORMATION
  Report Type: Spontaneous
  Country: US (occurrence: None)
  Receive Date: 20130416
  Receipt Date: 20130416
  Transmission Date: 20140414
  Serious: Yes (Other)
  Sender: FDA-Public Use
  Company Number: None

PATIENT
  Age: 46 Year
  Sex: Male

DRUGS (1)
  1. AVONEX [Suspect]
     Indication: MULTIPLE SCLEROSIS
     Dosage: 30 MCG  1/4 DOSE ON WEEK 1, 1/2   INTRAMUSCULARLY
     Route: 030
     Dates: start: 20130322, end: 20130405

REACTIONS (4)
  - Depression [None]
  - Anxiety [None]
  - Anger [None]
  - Condition aggravated [None]
